FAERS Safety Report 5029171-3 (Version None)
Quarter: 2006Q2

REPORT INFORMATION
  Report Type: 
  Country: None (occurrence: None)
  Receive Date: 20060613
  Receipt Date: 20060606
  Transmission Date: 20061013
  Serious: Yes (Hospitalization, Other)
  Sender: FDA-Public Use
  Company Number: HQWYE306612JAN06

PATIENT
  Age: 22 Year
  Sex: Male

DRUGS (8)
  1. RAPAMUNE [Suspect]
     Indication: PROPHYLAXIS AGAINST TRANSPLANT REJECTION
     Dosage: SEE IMAGE
     Route: 048
     Dates: start: 20051123, end: 20051219
  2. RAPAMUNE [Suspect]
     Indication: PROPHYLAXIS AGAINST TRANSPLANT REJECTION
     Dosage: SEE IMAGE
     Route: 048
     Dates: start: 20051220, end: 20060324
  3. CELLCEPT [Concomitant]
  4. PREDNISONE TAB [Concomitant]
  5. SEPTRA [Concomitant]
  6. LANSOPRAZOLE [Concomitant]
  7. CALCIUM LACTATE (CALCIUM LACTATE) [Concomitant]
  8. ALUMINIUM OXIDE (ALUMINIUM OXIDE) [Concomitant]

REACTIONS (2)
  - DRUG INEFFECTIVE [None]
  - KIDNEY TRANSPLANT REJECTION [None]
